FAERS Safety Report 9495681 (Version 1)
Quarter: 2013Q3

REPORT INFORMATION
  Report Type: Report from Study
  Country: KE (occurrence: KE)
  Receive Date: 20130903
  Receipt Date: 20130903
  Transmission Date: 20140515
  Serious: Yes (Disabling)
  Sender: FDA-Public Use
  Company Number: KE-BRISTOL-MYERS SQUIBB COMPANY-19223155

PATIENT
  Age: 45 Year
  Sex: Male
  Weight: 66 kg

DRUGS (4)
  1. STOCRIN TABS [Suspect]
     Indication: HIV INFECTION
     Route: 048
     Dates: start: 20100319
  2. LAMIVUDINE + ZIDOVUDINE [Suspect]
     Indication: HIV INFECTION
     Dosage: 1DF: 150/300 MG
     Route: 048
     Dates: start: 20100319
  3. SULFAMETHOXAZOLE + TRIMETHOPRIM [Concomitant]
     Dates: start: 20100319
  4. MULTIVITAMIN [Concomitant]
     Dates: start: 20100319

REACTIONS (1)
  - Erectile dysfunction [Not Recovered/Not Resolved]
